FAERS Safety Report 9018352 (Version 2)
Quarter: 2013Q1

REPORT INFORMATION
  Report Type: Spontaneous
  Country: JP (occurrence: JP)
  Receive Date: 20130118
  Receipt Date: 20130206
  Transmission Date: 20140127
  Serious: No
  Sender: FDA-Public Use
  Company Number: JP-009507513-1301JPN008605

PATIENT
  Age: 63 Year
  Sex: Male

DRUGS (4)
  1. PEGINTRON [Suspect]
     Dosage: 1.5 MICROGRAM PER KILOGRAM, UNK
     Route: 058
     Dates: start: 20121127
  2. REBETOL [Suspect]
     Dosage: 800 MG, QD
     Route: 048
     Dates: start: 20121127
  3. TELAVIC [Suspect]
     Dosage: 2250MG, QD
     Route: 048
     Dates: start: 20121127
  4. TELAVIC [Suspect]
     Dosage: 1500MG, QD
     Route: 048
     Dates: start: 201212

REACTIONS (1)
  - Rash [Recovering/Resolving]
